FAERS Safety Report 7682993-2 (Version None)
Quarter: 2011Q3

REPORT INFORMATION
  Report Type: 
  Country: None (occurrence: None)
  Receive Date: 20110812
  Receipt Date: 20110812
  Transmission Date: 20111222
  Serious: Yes (Other)
  Sender: FDA-Public Use
  Company Number: None

PATIENT
  Age: 64 Year
  Sex: Female
  Weight: 67.586 kg

DRUGS (1)
  1. SIMVASTATIN [Suspect]
     Indication: BLOOD CHOLESTEROL
     Dosage: 40 MG 1 DAILY
     Dates: start: 20100803, end: 20101019

REACTIONS (5)
  - INSOMNIA [None]
  - PRODUCT SUBSTITUTION ISSUE [None]
  - PANIC ATTACK [None]
  - WEIGHT DECREASED [None]
  - DECREASED APPETITE [None]
